FAERS Safety Report 9233670 (Version 1)
Quarter: 2013Q2

REPORT INFORMATION
  Report Type: Spontaneous
  Country: US (occurrence: US)
  Receive Date: 20130416
  Receipt Date: 20130416
  Transmission Date: 20140414
  Serious: No
  Sender: FDA-Public Use
  Company Number: US-BANPHARM-20130696

PATIENT
  Age: 83 Year
  Sex: Male
  Weight: 74.84 kg

DRUGS (6)
  1. ALEVE LIQUID GELS 220MG [Suspect]
     Indication: PAIN
     Dosage: 1 DF,
     Route: 048
     Dates: start: 20120312
  2. AMLODIPINE [Concomitant]
  3. BYSTOLIC [Concomitant]
  4. LOSARTAN [Concomitant]
  5. PLAVIX [Concomitant]
  6. FLOMAX [Concomitant]

REACTIONS (1)
  - Drug effect incomplete [Unknown]
